FAERS Safety Report 7642950-9 (Version None)
Quarter: 2011Q3

REPORT INFORMATION
  Report Type: 
  Country: None (occurrence: None)
  Receive Date: 20110728
  Receipt Date: 20100315
  Transmission Date: 20111222
  Serious: Yes (Other)
  Sender: FDA-Public Use
  Company Number: US-BAYER-200829609NA

PATIENT
  Age: 61 Year
  Sex: Male
  Weight: 109.9 kg

DRUGS (12)
  1. OMNISCAN [Suspect]
     Indication: ANGIOGRAM
     Dosage: PER 2ND AMENDED PFS
     Dates: start: 20010511, end: 20010511
  2. OMNISCAN [Suspect]
     Indication: NUCLEAR MAGNETIC RESONANCE IMAGING
     Dates: start: 20030731, end: 20030731
  3. MULTI-VITAMIN [Concomitant]
  4. MULTIHANCE [Suspect]
     Indication: PRODUCT USED FOR UNKNOWN INDICATION
  5. FISH OIL [Concomitant]
  6. MAGNEVIST [Suspect]
     Indication: COMPUTERISED TOMOGRAM
     Dates: start: 20040816, end: 20040816
  7. OMNISCAN [Suspect]
     Dates: start: 20040511, end: 20040511
  8. OMNISCAN [Suspect]
     Dates: start: 20040827, end: 20040827
  9. OPTIMARK [Suspect]
     Indication: PRODUCT USED FOR UNKNOWN INDICATION
  10. PROHANCE [Suspect]
     Indication: PRODUCT USED FOR UNKNOWN INDICATION
  11. CONTRAST MEDIA [Suspect]
     Dates: start: 20070920, end: 20070920
  12. MAGNEVIST [Suspect]
     Indication: X-RAY
     Dates: start: 20040811, end: 20040811

REACTIONS (6)
  - SKIN TIGHTNESS [None]
  - BURNING SENSATION [None]
  - NEPHROGENIC SYSTEMIC FIBROSIS [None]
  - PRURITUS [None]
  - SWELLING [None]
  - MYALGIA [None]
